FAERS Safety Report 5422628-2 (Version None)
Quarter: 2007Q3

REPORT INFORMATION
  Report Type: 
  Country: None (occurrence: None)
  Receive Date: 20070730
  Receipt Date: 20061016
  Transmission Date: 20080115
  Serious: Yes (Other)
  Sender: FDA-Public Use
  Company Number: 200614998BWH

PATIENT
  Age: 68 Year
  Sex: Female

DRUGS (5)
  1. AVELOX [Suspect]
     Indication: SINUSITIS
     Dosage: 400 MG, ONCE, ORAL
     Route: 048
     Dates: start: 20060713
  2. COREG [Concomitant]
  3. FUROSEMIDE [Concomitant]
  4. ISOSORBIDE MONONITRATE [Concomitant]
  5. PROTONIX [Concomitant]

REACTIONS (3)
  - LOSS OF CONSCIOUSNESS [None]
  - NAUSEA [None]
  - UNEVALUABLE EVENT [None]
